FAERS Safety Report 6657550-7 (Version None)
Quarter: 2010Q1

REPORT INFORMATION
  Report Type: 
  Country: None (occurrence: None)
  Receive Date: 20100319
  Receipt Date: 20090527
  Transmission Date: 20100710
  Serious: Yes (Other)
  Sender: FDA-Public Use
  Company Number: 2009SP011159

PATIENT
  Age: 57 Year
  Sex: Male
  Weight: 62 kg

DRUGS (14)
  1. PEG-INTRON [Suspect]
     Indication: HEPATITIS C
     Dates: start: 20080822, end: 20090130
  2. REBETOL [Suspect]
     Indication: HEPATITIS C
     Dosage: ; PO
     Route: 048
     Dates: start: 20080822, end: 20090130
  3. PROCRIT [Suspect]
     Indication: ANAEMIA
     Dosage: 60000 IU; QW; SC
     Route: 058
     Dates: start: 20081003
  4. NEUPOGEN [Suspect]
     Indication: ANAEMIA
     Dosage: 600 MCG; QOW; SC
     Route: 058
     Dates: start: 20080915
  5. ALDACTONE [Concomitant]
  6. RESTORIL [Concomitant]
  7. MS CONTIN [Concomitant]
  8. OXYCODONE [Concomitant]
  9. TRAZODONE [Concomitant]
  10. SYNTHROID [Concomitant]
  11. PRILOSEC [Concomitant]
  12. LASIX [Concomitant]
  13. PHENERGAN [Concomitant]
  14. COMBIVENT [Concomitant]

REACTIONS (1)
  - PANCYTOPENIA [None]
